FAERS Safety Report 8274540-1 (Version None)
Quarter: 2012Q2

REPORT INFORMATION
  Report Type: 
  Country: None (occurrence: None)
  Receive Date: 20120411
  Receipt Date: 20120310
  Transmission Date: 20120825
  Serious: No
  Sender: FDA-Public Use
  Company Number: JP-ROCHE-1055894

PATIENT
  Age: 3 Year
  Sex: Female
  Weight: 15 kg

DRUGS (10)
  1. LACTOMIN [Concomitant]
     Dosage: DOSAGE IS UNCERTAIN.
     Route: 048
  2. TAMIFLU [Suspect]
     Indication: PRODUCT USED FOR UNKNOWN INDICATION
     Dosage: DRY SYRUP 3%
     Route: 048
     Dates: start: 20120308, end: 20120308
  3. METHY-F [Concomitant]
     Dosage: DOSAGE IS UNCERTAIN.
     Route: 048
  4. ALBUMIN TANNATE [Concomitant]
     Dosage: DOSAGE IS UNCERTAIN.
     Route: 048
  5. ADSORBIN [Concomitant]
     Dosage: DOSAGE IS UNCERTAIN.
     Route: 048
  6. MUCOSOLVAN [Concomitant]
     Dosage: DOSAGE IS UNCERTAIN.
     Route: 048
  7. SODIUM AZULENE SULFONATE [Concomitant]
  8. TAMIFLU [Suspect]
     Route: 048
     Dates: start: 20120309, end: 20120309
  9. PERIACTIN [Concomitant]
     Dosage: DOSAGE IS UNCERTAIN.
     Route: 048
  10. ASVERIN [Concomitant]
     Dosage: DOSAGE IS UNCERTAIN.
     Route: 048

REACTIONS (2)
  - OVERDOSE [None]
  - NO ADVERSE EVENT [None]
